FAERS Safety Report 4364013-0 (Version None)
Quarter: 2004Q2

REPORT INFORMATION
  Report Type: 
  Country: None (occurrence: None)
  Receive Date: 20040513
  Receipt Date: 20040426
  Transmission Date: 20050107
  Serious: Yes (Death)
  Sender: FDA-Public Use
  Company Number: THYM-10126

PATIENT
  Age: 52 Year
  Sex: Male

DRUGS (8)
  1. THYMOGLOBULIN [Suspect]
     Indication: PROPHYLAXIS AGAINST TRANSPLANT REJECTION
     Dosage: 2.5 MG/KG DAILY IV
     Route: 042
  2. FLUDARABINE PHOSPHATE [Concomitant]
  3. BUSULFAN [Concomitant]
  4. CYCLOSPORINE [Concomitant]
  5. ANTIINFECTIVES [Concomitant]
  6. CIPROFLOXACIN [Concomitant]
  7. FUCONAZOLE [Concomitant]
  8. ACYCLOVIR [Concomitant]

REACTIONS (2)
  - BONE MARROW DEPRESSION [None]
  - TRANSPLANT FAILURE [None]
